FAERS Safety Report 7568317-X (Version None)
Quarter: 2011Q2

REPORT INFORMATION
  Report Type: 
  Country: None (occurrence: None)
  Receive Date: 20110623
  Receipt Date: 20110607
  Transmission Date: 20111010
  Serious: Yes (Hospitalization)
  Sender: FDA-Public Use
  Company Number: A0779954A

PATIENT
  Age: 61 Year
  Sex: Male
  Weight: 79.5 kg

DRUGS (7)
  1. AVANDIA [Suspect]
     Route: 048
     Dates: start: 20051101, end: 20070701
  2. PRINIVIL [Concomitant]
  3. GLIPIZIDE [Concomitant]
  4. NEXIUM [Concomitant]
  5. MULTI-VITAMIN [Concomitant]
  6. METFORMIN HCL [Concomitant]
  7. FISH OIL [Concomitant]

REACTIONS (2)
  - MYOCARDIAL INFARCTION [None]
  - MYOCARDIAL ISCHAEMIA [None]
